FAERS Safety Report 12782122 (Version 1)
Quarter: 2016Q3

REPORT INFORMATION
  Report Type: Spontaneous
  Country: US (occurrence: US)
  Receive Date: 20160923
  Receipt Date: 20160923
  Transmission Date: 20161109
  Serious: Yes (Hospitalization)
  Sender: FDA-Public Use
  Company Number: None

PATIENT
  Age: 73 Year
  Sex: Female
  Weight: 63.5 kg

DRUGS (2)
  1. LENALIDOMIDE [Suspect]
     Active Substance: LENALIDOMIDE
     Indication: PLASMA CELL MYELOMA
     Dosage: LENALIDOMIDE 15 MG, DAYS 1-21, PO
     Route: 048
     Dates: start: 20160201, end: 20160815
  2. DEXAMETHASONE. [Suspect]
     Active Substance: DEXAMETHASONE
     Dosage: DEXAMETHASONE 8MG, DAYS 1, 8, 15, 22 - PO
     Route: 048
     Dates: start: 20160201, end: 20160809

REACTIONS (5)
  - Nausea [None]
  - Vomiting [None]
  - Diarrhoea [None]
  - Colitis [None]
  - Rectal haemorrhage [None]

NARRATIVE: CASE EVENT DATE: 20160817
